FAERS Safety Report 22047414 (Version 2)
Quarter: 2023Q2

REPORT INFORMATION
  Report Type: Spontaneous
  Country: FR (occurrence: FR)
  Receive Date: 20230301
  Receipt Date: 20230405
  Transmission Date: 20230721
  Serious: Yes (Death, Other)
  Sender: FDA-Public Use
  Company Number: FR-AFSSAPS-PB2023000204

PATIENT
  Age: 67 Year
  Sex: Male
  Weight: 66.5 kg

DRUGS (6)
  1. DOCETAXEL [Suspect]
     Active Substance: DOCETAXEL
     Indication: Tonsil cancer
     Dosage: UNK
     Route: 042
     Dates: start: 20230123, end: 20230127
  2. GEMCITABINE [Suspect]
     Active Substance: GEMCITABINE
     Indication: Tonsil cancer
     Dosage: UNK
     Route: 042
     Dates: start: 20230123, end: 20230127
  3. VINORELBINE [Suspect]
     Active Substance: VINORELBINE TARTRATE
     Indication: Tonsil cancer
     Dosage: UNK
     Route: 042
     Dates: start: 20230123, end: 20230127
  4. CISPLATIN [Suspect]
     Active Substance: CISPLATIN
     Indication: Tonsil cancer
     Dosage: 34 MILLIGRAM, ONCE A DAY
     Route: 065
     Dates: start: 20230118, end: 20230121
  5. DOCETAXEL [Suspect]
     Active Substance: DOCETAXEL
     Indication: Tonsil cancer
     Dosage: 129 MILLIGRAM
     Route: 065
     Dates: start: 20230120, end: 20230120
  6. FLUOROURACIL [Suspect]
     Active Substance: FLUOROURACIL
     Indication: Tonsil cancer
     Dosage: 2550 MILLIGRAM
     Route: 065
     Dates: start: 20230118, end: 20230120

REACTIONS (5)
  - Bone marrow failure [Fatal]
  - Circulatory collapse [Fatal]
  - Colitis [Fatal]
  - Leukopenia [Fatal]
  - Thrombocytopenia [Fatal]

NARRATIVE: CASE EVENT DATE: 20230130
